FAERS Safety Report 7617813-5 (Version None)
Quarter: 2011Q3

REPORT INFORMATION
  Report Type: 
  Country: None (occurrence: None)
  Receive Date: 20110718
  Receipt Date: 20081001
  Transmission Date: 20111222
  Serious: Yes (Death, Hospitalization, Other)
  Sender: FDA-Public Use
  Company Number: US-BAYER-2011-005986

PATIENT
  Age: 76 Year
  Sex: Male
  Weight: 69 kg

DRUGS (15)
  1. TRASYLOL [Suspect]
     Indication: CORONARY ARTERY BYPASS
     Dosage: UNK
     Route: 042
     Dates: start: 20031021, end: 20031022
  2. MORPHINE [Concomitant]
     Dosage: 2 MG
     Route: 042
     Dates: start: 20031021, end: 20031021
  3. HEPARIN [Concomitant]
     Dosage: 15
     Route: 042
     Dates: start: 20031021, end: 20031021
  4. PROTAMINE SULFATE [Concomitant]
     Dosage: 250MG
     Route: 042
     Dates: start: 20031021
  5. DOPAMINE HCL [Concomitant]
     Dosage: UNK
     Route: 042
     Dates: start: 20031021
  6. DOBUTREX [Concomitant]
     Dosage: UNK
     Route: 042
     Dates: start: 20031021
  7. ZANTAC [Concomitant]
     Dosage: UNK
     Route: 042
     Dates: start: 20031021, end: 20031021
  8. ZETIA [Concomitant]
     Dosage: 10 MG, QD
     Route: 048
  9. INSULIN [Concomitant]
     Dosage: UNK
  10. PROTAMINE SULFATE [Concomitant]
  11. NITRODERM [Concomitant]
     Dosage: UNK
     Route: 042
     Dates: start: 20031021
  12. TOPROL-XL [Concomitant]
     Dosage: 100 MG, QD
     Route: 048
  13. LISINOPRIL [Concomitant]
     Dosage: 20 MG, QD
     Route: 048
  14. BENADRYL [Concomitant]
     Dosage: 50 MG
     Route: 048
  15. GLUCOVANCE [Concomitant]
     Dosage: 5/500 TWICE DAILY
     Route: 048

REACTIONS (10)
  - RENAL FAILURE [None]
  - PAIN [None]
  - STRESS [None]
  - PSYCHIATRIC SYMPTOM [None]
  - PNEUMONIA [None]
  - INJURY [None]
  - EMOTIONAL DISTRESS [None]
  - ANXIETY [None]
  - MENTAL DISORDER [None]
  - EMOTIONAL DISORDER [None]
